FAERS Safety Report 6566391-0 (Version None)
Quarter: 2010Q1

REPORT INFORMATION
  Report Type: 
  Country: None (occurrence: None)
  Receive Date: 20100129
  Receipt Date: 20081204
  Transmission Date: 20100710
  Serious: Yes (Hospitalization)
  Sender: FDA-Public Use
  Company Number: 2008BH013462

PATIENT

DRUGS (1)
  1. DIANEAL [Suspect]
     Indication: RENAL FAILURE CHRONIC
     Dosage: IP
     Route: 033

REACTIONS (3)
  - MEDICAL DEVICE COMPLICATION [None]
  - PERITONITIS BACTERIAL [None]
  - ROAD TRAFFIC ACCIDENT [None]
